FAERS Safety Report 19504703 (Version 1)
Quarter: 2021Q3

REPORT INFORMATION
  Report Type: Spontaneous
  Country: US (occurrence: US)
  Receive Date: 20210706
  Receipt Date: 20210706
  Transmission Date: 20211014
  Serious: Yes (Death, Life-Threatening, Hospitalization)
  Sender: FDA-Public Use
  Company Number: None

PATIENT
  Age: 83 Year
  Sex: Male
  Weight: 60.33 kg

DRUGS (11)
  1. ARMOUR THYROID [Concomitant]
     Active Substance: THYROID, PORCINE
  2. VITAMIN D3 [Concomitant]
     Active Substance: CHOLECALCIFEROL
  3. PLAVIX [Concomitant]
     Active Substance: CLOPIDOGREL BISULFATE
  4. GABAPENTIN 300MG CAP [Suspect]
     Active Substance: GABAPENTIN
     Indication: NEUROPATHY PERIPHERAL
     Dosage: ?          QUANTITY:1 DF DOSAGE FORM;?
     Route: 048
     Dates: start: 20210609, end: 20210610
  5. ISOSORBIDE. [Concomitant]
     Active Substance: ISOSORBIDE
  6. VITAMIN E [Concomitant]
     Active Substance: .ALPHA.-TOCOPHEROL
  7. BUMEX [Concomitant]
     Active Substance: BUMETANIDE
  8. LISINOPRIL. [Concomitant]
     Active Substance: LISINOPRIL
  9. ZINC. [Concomitant]
     Active Substance: ZINC
  10. ASPIRIN 81MG [Concomitant]
     Active Substance: ASPIRIN
  11. COENZYME Q10 [Concomitant]
     Active Substance: DIETARY SUPPLEMENT\UBIDECARENONE

REACTIONS (4)
  - Renal failure [None]
  - Cardiac failure [None]
  - Helplessness [None]
  - COVID-19 [None]

NARRATIVE: CASE EVENT DATE: 20210609
